FAERS Safety Report 8394527-8 (Version None)
Quarter: 2012Q2

REPORT INFORMATION
  Report Type: 
  Country: None (occurrence: None)
  Receive Date: 20120530
  Receipt Date: 20120525
  Transmission Date: 20120825
  Serious: Yes (Hospitalization, Other)
  Sender: FDA-Public Use
  Company Number: PHHY2012MX036449

PATIENT
  Age: 68 Year
  Sex: Female

DRUGS (10)
  1. ZOLEDRONOC ACID [Suspect]
     Indication: OSTEOPOROSIS
     Route: 042
     Dates: start: 20100101
  2. PROLOY [Concomitant]
     Indication: POSTPARTUM HYPOPITUITARISM
     Dosage: 1 DF, UNK
  3. CALCITRIOL [Concomitant]
     Indication: OSTEOPOROSIS
  4. ZOLEDRONOC ACID [Suspect]
     Dosage: 5 MG /100 ML PER YEAR
     Route: 042
     Dates: start: 20110201
  5. METOPROLOL TARTRATE [Concomitant]
     Indication: HYPERTENSION
     Dosage: 1 DF, QD
  6. ZOLEDRONOC ACID [Suspect]
     Route: 042
     Dates: start: 20120424
  7. METICORTEN [Concomitant]
     Indication: POSTPARTUM HYPOPITUITARISM
     Dosage: 1 DF, QD
     Dates: start: 19830101
  8. OMEPRAZOLE [Concomitant]
     Indication: GASTRITIS
     Dosage: 20 MG, QD
     Dates: start: 20111001
  9. LEVOTHYROXINE SODIUM [Concomitant]
     Indication: POSTPARTUM HYPOPITUITARISM
     Dosage: 100 MG, QD
  10. DEFLAZACORT [Concomitant]
     Indication: POSTPARTUM HYPOPITUITARISM
     Dosage: 6 MG, UNK

REACTIONS (2)
  - SPINAL FRACTURE [None]
  - FEMUR FRACTURE [None]
